FAERS Safety Report 23873134 (Version 1)
Quarter: 2024Q2

REPORT INFORMATION
  Report Type: Spontaneous
  Country: FR (occurrence: FR)
  Receive Date: 20240520
  Receipt Date: 20240520
  Transmission Date: 20240715
  Serious: Yes (Life-Threatening)
  Sender: FDA-Public Use
  Company Number: None

PATIENT
  Age: 50 Year
  Sex: Male
  Weight: 66 kg

DRUGS (1)
  1. CAPECITABINE [Suspect]
     Active Substance: CAPECITABINE
     Indication: Renal cell carcinoma
     Dates: start: 20240319

REACTIONS (3)
  - Congenital aplasia [Recovered/Resolved]
  - Product administration error [Recovered/Resolved]
  - Mucosal inflammation [Recovered/Resolved]
